FAERS Safety Report 9844629 (Version 2)
Quarter: 2014Q1

REPORT INFORMATION
  Report Type: Spontaneous
  Country: FR (occurrence: None)
  Receive Date: 20140122
  Receipt Date: 20140207
  Transmission Date: 20141002
  Serious: Yes (Hospitalization)
  Sender: FDA-Public Use
  Company Number: B0956374A

PATIENT
  Age: 83 Year
  Sex: Male

DRUGS (9)
  1. PAROXETINE HYDROCHLORIDE [Suspect]
     Indication: PRODUCT USED FOR UNKNOWN INDICATION
     Route: 048
     Dates: start: 201305, end: 201310
  2. RAMIPRIL [Suspect]
     Indication: PRODUCT USED FOR UNKNOWN INDICATION
     Route: 048
  3. LANTHANUM CARBONATE [Suspect]
     Indication: PRODUCT USED FOR UNKNOWN INDICATION
     Route: 048
     Dates: start: 20130821
  4. BROMAZEPAM [Suspect]
     Indication: PRODUCT USED FOR UNKNOWN INDICATION
     Route: 048
     Dates: start: 201305, end: 201310
  5. ALFACALCIDOL [Concomitant]
  6. LYSINE ASPIRIN [Concomitant]
  7. ATORVASTATIN CALCIUM [Concomitant]
  8. FRUSEMIDE [Concomitant]
  9. LERCANIDIPINE HYDROCHLOR [Concomitant]

REACTIONS (4)
  - Leukopenia [None]
  - Lymphopenia [None]
  - Neutropenia [None]
  - Acute leukaemia [None]
